FAERS Safety Report 5375205-6 (Version None)
Quarter: 2007Q2

REPORT INFORMATION
  Report Type: 
  Country: None (occurrence: None)
  Receive Date: 20070629
  Receipt Date: 20060920
  Transmission Date: 20071010
  Serious: Yes (Other)
  Sender: FDA-Public Use
  Company Number: US-ASTRAZENECA-2006UW18410

PATIENT
  Age: 64 Year
  Sex: Female
  Weight: 79.4 kg

DRUGS (2)
  1. TAMOXIFEN CITRATE [Suspect]
     Indication: BREAST CANCER STAGE II
     Route: 048
     Dates: start: 19980101
  2. ARIMIDEX [Concomitant]
     Route: 048

REACTIONS (1)
  - ENDOMETRIAL CANCER [None]
